FAERS Safety Report 20883313 (Version 4)
Quarter: 2023Q1

REPORT INFORMATION
  Report Type: Spontaneous
  Country: CA (occurrence: CA)
  Receive Date: 20220527
  Receipt Date: 20230202
  Transmission Date: 20230417
  Serious: Yes (Hospitalization, Other)
  Sender: FDA-Public Use
  Company Number: CA-CELLTRION INC.-2022CA007706

PATIENT

DRUGS (4)
  1. INFLECTRA [Suspect]
     Active Substance: INFLIXIMAB-DYYB
     Indication: Rheumatoid arthritis
     Dosage: 200MG INDUCTION AT Q 0 , 2, 6 WEEK THEN EVERY 8 WEEKS
     Route: 042
     Dates: start: 20200923
  2. INFLECTRA [Suspect]
     Active Substance: INFLIXIMAB-DYYB
     Dosage: 200MG  Q 0 , 2, 6 WEEK THEN EVERY 8 WEEKS
     Route: 042
     Dates: start: 20220323
  3. INFLECTRA [Suspect]
     Active Substance: INFLIXIMAB-DYYB
     Dosage: 200MG  Q 0 , 2, 6 WEEK THEN EVERY 8 WEEKS
     Route: 042
     Dates: start: 20220323
  4. INFLECTRA [Suspect]
     Active Substance: INFLIXIMAB-DYYB
     Dosage: 200MG  Q 0 , 2, 6 WEEK THEN EVERY 8 WEEKS
     Route: 042
     Dates: start: 20221130

REACTIONS (11)
  - Respiratory disorder [Unknown]
  - Diabetes mellitus [Not Recovered/Not Resolved]
  - Off label use [Unknown]
  - Joint stiffness [Not Recovered/Not Resolved]
  - Pain in extremity [Not Recovered/Not Resolved]
  - Peripheral swelling [Not Recovered/Not Resolved]
  - Arthralgia [Unknown]
  - Blood pressure fluctuation [Not Recovered/Not Resolved]
  - Blood pressure increased [Not Recovered/Not Resolved]
  - Suspected COVID-19 [Unknown]
  - COVID-19 [Not Recovered/Not Resolved]

NARRATIVE: CASE EVENT DATE: 20220323
